FAERS Safety Report 4289980-5 (Version None)
Quarter: 2004Q1

REPORT INFORMATION
  Report Type: 
  Country: None (occurrence: None)
  Receive Date: 20040210
  Receipt Date: 20040203
  Transmission Date: 20041129
  Serious: Yes (Hospitalization)
  Sender: FDA-Public Use
  Company Number: WAES 0402USA00287

PATIENT
  Age: 62 Year
  Sex: Female

DRUGS (4)
  1. [THERAPY UNSPECIFIED] [Concomitant]
  2. FOSAMAX [Suspect]
     Indication: OSTEOPOROSIS
     Route: 048
     Dates: start: 20010101
  3. OXYGEN [Concomitant]
  4. OXYGEN [Concomitant]

REACTIONS (4)
  - FALL [None]
  - HIP FRACTURE [None]
  - NEUROPATHY PERIPHERAL [None]
  - UPPER LIMB FRACTURE [None]
